FAERS Safety Report 4961621-0 (Version None)
Quarter: 2006Q1

REPORT INFORMATION
  Report Type: 
  Country: None (occurrence: None)
  Receive Date: 20060329
  Receipt Date: 20060322
  Transmission Date: 20060701
  Serious: Yes (Death, Hospitalization)
  Sender: FDA-Public Use
  Company Number: 2006-BP-03256RO

PATIENT
  Age: 55 Year
  Sex: Male

DRUGS (2)
  1. LEUCOVORIN CALCIUM [Suspect]
     Indication: COLON CANCER
     Dosage: 50 MG DAILY X 5 DAYS, IV
     Route: 042
  2. FLUOROURACIL [Suspect]
     Indication: COLON CANCER
     Dosage: 500 MG DAILY X 5 DAYS, IV
     Route: 042

REACTIONS (11)
  - ABASIA [None]
  - COLON CANCER RECURRENT [None]
  - DYSAESTHESIA [None]
  - DYSURIA [None]
  - EXTENSOR PLANTAR RESPONSE [None]
  - HYPERREFLEXIA [None]
  - MUSCULAR WEAKNESS [None]
  - MYELITIS [None]
  - NUCLEAR MAGNETIC RESONANCE IMAGING BRAIN ABNORMAL [None]
  - PROTEIN TOTAL INCREASED [None]
  - URINARY RETENTION [None]
